FAERS Safety Report 8906180 (Version 2)
Quarter: 2012Q4

REPORT INFORMATION
  Report Type: Spontaneous
  Country: DK (occurrence: None)
  Receive Date: 20121109
  Receipt Date: 20121121
  Transmission Date: 20130627
  Serious: Yes (Life-Threatening, Hospitalization, Congenital Anomaly, Other)
  Sender: FDA-Public Use
  Company Number: AUR-APL-2012-04803

PATIENT
  Sex: Female
  Weight: 1.6 kg

DRUGS (6)
  1. METFORMIN [Suspect]
     Indication: TYPE 2 DIABETES MELLITUS
     Route: 064
     Dates: start: 20090709, end: 20100126
  2. RAMIPRIL [Suspect]
     Indication: HYPERTENSION
     Route: 064
     Dates: start: 20090709, end: 20100126
  3. METOPROLOL [Concomitant]
  4. DOPEGYT [Concomitant]
  5. NOVORAPID [Concomitant]
  6. PROTAPHANE [Concomitant]

REACTIONS (12)
  - Maternal drugs affecting foetus [None]
  - Caesarean section [None]
  - Premature baby [None]
  - Neonatal respiratory distress syndrome [None]
  - Congenital aortic valve incompetence [None]
  - Congenital mitral valve incompetence [None]
  - Patent ductus arteriosus [None]
  - Atrial septal defect [None]
  - Pulmonary hypertension [None]
  - Congenital aortic stenosis [None]
  - Urine output decreased [None]
  - HELLP syndrome [None]
